FAERS Safety Report 8369677-2 (Version None)
Quarter: 2012Q2

REPORT INFORMATION
  Report Type: 
  Country: None (occurrence: None)
  Receive Date: 20120518
  Receipt Date: 20120510
  Transmission Date: 20120825
  Serious: Yes (Hospitalization)
  Sender: FDA-Public Use
  Company Number: CH-ASTELLAS-2012EU003399

PATIENT
  Age: 35 Year
  Sex: Female
  Weight: 43.5 kg

DRUGS (9)
  1. PROGRAF [Interacting]
     Indication: RENAL AND PANCREAS TRANSPLANT
     Dosage: 1 MG, BID
     Route: 048
     Dates: start: 20111101
  2. DIFLUCAN [Interacting]
     Dosage: 200 MG, UID/QD
     Route: 048
     Dates: start: 20120105, end: 20120116
  3. CELLCEPT [Suspect]
     Indication: RENAL AND PANCREAS TRANSPLANT
     Dosage: 500 MG, BID
     Route: 048
     Dates: start: 20111101
  4. MADOPAR [Concomitant]
     Dosage: 125 MG, UID/QD
     Route: 048
  5. PROGRAF [Interacting]
     Dosage: 0.5 MG, BID
     Route: 048
  6. DIFLUCAN [Interacting]
     Dosage: 100 MG, UNKNOWN/D
     Route: 048
     Dates: end: 20120119
  7. CELLCEPT [Suspect]
     Dosage: 100 MG, UNKNOWN/D
     Route: 048
     Dates: start: 20120117
  8. PANTOPRAZOLE [Concomitant]
     Dosage: 40 MG, UID/QD
     Route: 048
  9. BACTRIM DS [Concomitant]
     Dosage: 400 MG, UID/QD
     Route: 048

REACTIONS (2)
  - THROMBOTIC MICROANGIOPATHY [None]
  - RENAL TUBULAR DISORDER [None]
